FAERS Safety Report 6099475-4 (Version None)
Quarter: 2009Q1

REPORT INFORMATION
  Report Type: 
  Country: None (occurrence: None)
  Receive Date: 20090303
  Receipt Date: 20090219
  Transmission Date: 20090719
  Serious: Yes (Hospitalization)
  Sender: FDA-Public Use
  Company Number: US-ELI_LILLY_AND_COMPANY-US200812006133

PATIENT
  Sex: Female

DRUGS (14)
  1. HUMATROPE [Suspect]
     Indication: HYPOPITUITARISM
     Dosage: 6 MG, DAILY (1/D)
     Dates: start: 20070201
  2. TYLENOL                                 /SCH/ [Concomitant]
  3. AGGRENOX [Concomitant]
  4. ALLEGRA [Concomitant]
  5. CALTRATE [Concomitant]
  6. MULTI-VITAMIN [Concomitant]
  7. COLACE [Concomitant]
  8. DDAVP [Concomitant]
  9. PARLODEL [Concomitant]
  10. POTASSIUM CHLORIDE [Concomitant]
  11. PREMARIN [Concomitant]
  12. SYNTHROID [Concomitant]
  13. TEMAZEPAM [Concomitant]
  14. XALATAN [Concomitant]

REACTIONS (1)
  - CLOSTRIDIUM DIFFICILE COLITIS [None]
